FAERS Safety Report 8192929-6 (Version None)
Quarter: 2012Q1

REPORT INFORMATION
  Report Type: 
  Country: None (occurrence: None)
  Receive Date: 20120308
  Receipt Date: 20120227
  Transmission Date: 20120608
  Serious: Yes (Hospitalization)
  Sender: FDA-Public Use
  Company Number: DE-BRISTOL-MYERS SQUIBB COMPANY-16421794

PATIENT
  Age: 26 Year
  Sex: Female

DRUGS (1)
  1. ABILIFY [Suspect]
     Indication: PSYCHOTIC DISORDER

REACTIONS (1)
  - PULMONARY EMBOLISM [None]
